FAERS Safety Report 19119698 (Version 2)
Quarter: 2021Q3

REPORT INFORMATION
  Report Type: Spontaneous
  Country: US (occurrence: US)
  Receive Date: 20210412
  Receipt Date: 20210913
  Transmission Date: 20211014
  Serious: No
  Sender: FDA-Public Use
  Company Number: US-SA-2021SA115646

PATIENT
  Sex: Female
  Weight: 67.13 kg

DRUGS (3)
  1. DUPIXENT [Suspect]
     Active Substance: DUPILUMAB
     Indication: HEPATITIS B
     Dosage: 300 MG, QOW
     Route: 058
  2. DUPIXENT [Suspect]
     Active Substance: DUPILUMAB
     Indication: DERMATITIS ATOPIC
  3. VEMLIDY [Concomitant]
     Active Substance: TENOFOVIR ALAFENAMIDE FUMARATE
     Dosage: UNK

REACTIONS (5)
  - Eye infection [Recovered/Resolved]
  - Pain of skin [Unknown]
  - Erythema [Unknown]
  - Pruritus [Unknown]
  - Product use in unapproved indication [Unknown]
